FAERS Safety Report 10334734 (Version 4)
Quarter: 2018Q4

REPORT INFORMATION
  Report Type: Spontaneous
  Country: US (occurrence: US)
  Receive Date: 20140723
  Receipt Date: 20181123
  Transmission Date: 20190204
  Serious: Yes (Life-Threatening, Other)
  Sender: FDA-Public Use
  Company Number: US-PFIZER INC-2014174714

PATIENT
  Age: 67 Year
  Sex: Female
  Weight: 70.31 kg

DRUGS (3)
  1. EFFEXOR XR [Suspect]
     Active Substance: VENLAFAXINE HYDROCHLORIDE
     Indication: PREMENSTRUAL SYNDROME
     Dosage: UNK
     Route: 048
  2. EFFEXOR XR [Suspect]
     Active Substance: VENLAFAXINE HYDROCHLORIDE
     Dosage: 75 MG, 3X/DAY
     Route: 048
  3. EFFEXOR XR [Suspect]
     Active Substance: VENLAFAXINE HYDROCHLORIDE
     Indication: HOT FLUSH
     Dosage: 150 MG, 2X/DAY (2 TABLETS TWICE A DAY)
     Route: 048

REACTIONS (7)
  - Product use in unapproved indication [Unknown]
  - Suicidal ideation [Unknown]
  - Crying [Unknown]
  - Depressed mood [Unknown]
  - Overdose [Unknown]
  - Suicidal behaviour [Unknown]
  - Feeling abnormal [Unknown]
